FAERS Safety Report 23975778 (Version 1)
Quarter: 2024Q2

REPORT INFORMATION
  Report Type: Spontaneous
  Country: CN (occurrence: CN)
  Receive Date: 20240614
  Receipt Date: 20240614
  Transmission Date: 20240716
  Serious: Yes (Hospitalization)
  Sender: FDA-Public Use
  Company Number: CN-GLAXOSMITHKLINE-CN2024APC072308

PATIENT

DRUGS (6)
  1. LAMICTAL [Suspect]
     Active Substance: LAMOTRIGINE
     Indication: Epileptic psychosis
     Dosage: 50 MG, BID
     Route: 048
     Dates: start: 20240408, end: 20240608
  2. OXCARBAZEPINE [Suspect]
     Active Substance: OXCARBAZEPINE
     Indication: Epileptic psychosis
     Dosage: 0.6 G, TID
     Route: 048
     Dates: start: 20240408, end: 20240428
  3. OXCARBAZEPINE [Suspect]
     Active Substance: OXCARBAZEPINE
     Dosage: 0.6 G, TID
     Route: 048
     Dates: start: 20240429, end: 20240608
  4. VALPROATE SODIUM [Concomitant]
     Active Substance: VALPROATE SODIUM
     Indication: Mood swings
     Dosage: 0.5 G, QD
     Route: 048
     Dates: start: 20240408, end: 20240608
  5. TAI LUN ZUO [Concomitant]
     Indication: Epileptic psychosis
     Dosage: 0.05 G, QD
     Route: 048
     Dates: start: 20240408, end: 20240608
  6. CLONAZEPAM [Concomitant]
     Active Substance: CLONAZEPAM
     Indication: Insomnia
     Dosage: 2.0 MG
     Route: 048
     Dates: start: 20240408, end: 20240608

REACTIONS (3)
  - Hospitalisation [Recovering/Resolving]
  - Rash [Recovering/Resolving]
  - Dry eye [Recovering/Resolving]

NARRATIVE: CASE EVENT DATE: 20240408
